FAERS Safety Report 17265071 (Version 5)
Quarter: 2021Q3

REPORT INFORMATION
  Report Type: Report from Study
  Country: None (occurrence: US)
  Receive Date: 20200113
  Receipt Date: 20210921
  Transmission Date: 20211014
  Serious: Yes (Hospitalization, Other)
  Sender: FDA-Public Use
  Company Number: US-ABBVIE-20P-163-3230852-00

PATIENT
  Age: 64 Year
  Sex: Female

DRUGS (4)
  1. RINVOQ [Suspect]
     Active Substance: UPADACITINIB
     Route: 048
  2. PFIZER?BIONTECH COVID?19 VACCINE [Concomitant]
     Active Substance: TOZINAMERAN
     Indication: COVID-19 IMMUNISATION
     Dosage: PFIZER BIONTECH
     Route: 030
     Dates: start: 20210201, end: 20210201
  3. RINVOQ [Suspect]
     Active Substance: UPADACITINIB
     Indication: RHEUMATOID ARTHRITIS
     Route: 048
  4. PFIZER?BIONTECH COVID?19 VACCINE [Concomitant]
     Active Substance: TOZINAMERAN
     Dosage: PFIZER BIONTECH
     Route: 030
     Dates: start: 20210301, end: 20210301

REACTIONS (17)
  - Shoulder operation [Unknown]
  - Cardiac disorder [Unknown]
  - Asthenia [Unknown]
  - Urinary tract infection [Unknown]
  - Paraesthesia [Unknown]
  - Balance disorder [Unknown]
  - Cerebrovascular accident [Not Recovered/Not Resolved]
  - Insomnia [Unknown]
  - Formication [Unknown]
  - Musculoskeletal disorder [Unknown]
  - Diabetes mellitus [Unknown]
  - Pain [Unknown]
  - Dyspepsia [Unknown]
  - Inflammatory marker increased [Unknown]
  - Head discomfort [Unknown]
  - Productive cough [Not Recovered/Not Resolved]
  - Pharyngeal disorder [Unknown]

NARRATIVE: CASE EVENT DATE: 202001
